FAERS Safety Report 11108814 (Version 1)
Quarter: 2015Q2

REPORT INFORMATION
  Report Type: Spontaneous
  Country: US (occurrence: None)
  Receive Date: 20150511
  Receipt Date: 20150511
  Transmission Date: 20150821
  Serious: No
  Sender: FDA-Public Use
  Company Number: None

PATIENT
  Age: 58 Year
  Sex: Male
  Weight: 70.31 kg

DRUGS (13)
  1. VITAMIN D3 [Concomitant]
     Active Substance: CHOLECALCIFEROL
  2. SYNTHROID [Concomitant]
     Active Substance: LEVOTHYROXINE SODIUM
  3. FLAXSEED [Concomitant]
     Active Substance: FLAX SEED
  4. CALCIUM CITRATE [Concomitant]
     Active Substance: CALCIUM CITRATE
  5. DULOXETINE 30 MG [Suspect]
     Active Substance: DULOXETINE
     Indication: NEURALGIA
     Dosage: 1 PILL TAKEN BY MOUTH
     Route: 048
     Dates: start: 20130501, end: 20150502
  6. VITAMIN B COMPLEX [Concomitant]
     Active Substance: CYANOCOBALAMIN\DEXPANTHENOL\NIACINAMIDE\PYRIDOXINE HYDROCHLORIDE\RIBOFLAVIN 5^-PHOSPHATE SODIUM\THIAMINE HYDROCHLORIDE\VITAMIN B COMPLEX
  7. VITAMIN B12 [Concomitant]
     Active Substance: CYANOCOBALAMIN
  8. KEPPRA [Concomitant]
     Active Substance: LEVETIRACETAM
  9. GLUCOSAMINE CHONDROITIN [Concomitant]
     Active Substance: CHONDROITIN SULFATE (BOVINE)\GLUCOSAMINE HYDROCHLORIDE
  10. MAGNESIUM CITRATE. [Concomitant]
     Active Substance: MAGNESIUM CITRATE
  11. COQ10 [Concomitant]
     Active Substance: UBIDECARENONE
  12. SIMVASTATIN. [Concomitant]
     Active Substance: SIMVASTATIN
  13. FISH OIL [Concomitant]
     Active Substance: FISH OIL

REACTIONS (7)
  - Therapy cessation [None]
  - Indifference [None]
  - Feeling abnormal [None]
  - Drug dose omission [None]
  - Vertigo [None]
  - Unevaluable event [None]
  - Depressed level of consciousness [None]

NARRATIVE: CASE EVENT DATE: 20150508
